FAERS Safety Report 15063691 (Version 1)
Quarter: 2018Q2

REPORT INFORMATION
  Report Type: Spontaneous
  Country: US (occurrence: US)
  Receive Date: 20180625
  Receipt Date: 20180625
  Transmission Date: 20180711
  Serious: No
  Sender: FDA-Public Use
  Company Number: US-AMGEN-USASP2016055085

PATIENT
  Age: 63 Year
  Sex: Female

DRUGS (4)
  1. REPATHA [Suspect]
     Active Substance: EVOLOCUMAB
     Indication: HYPERCHOLESTEROLAEMIA
     Dosage: 140 MG, Q2WK
     Route: 065
     Dates: start: 201601
  2. BYSTOLIC [Concomitant]
     Active Substance: NEBIVOLOL HYDROCHLORIDE
  3. WELCHOL [Concomitant]
     Active Substance: COLESEVELAM HYDROCHLORIDE
  4. LISINOPRIL. [Concomitant]
     Active Substance: LISINOPRIL

REACTIONS (14)
  - Gait disturbance [Recovered/Resolved]
  - Joint swelling [Unknown]
  - Fall [Unknown]
  - Mobility decreased [Unknown]
  - Back pain [Unknown]
  - Joint stiffness [Unknown]
  - Balance disorder [Unknown]
  - Nasal injury [Unknown]
  - Asthenia [Unknown]
  - Vision blurred [Unknown]
  - Arthralgia [Unknown]
  - Lip injury [Unknown]
  - Pain in extremity [Not Recovered/Not Resolved]
  - Cough [Unknown]
